FAERS Safety Report 23634874 (Version 2)
Quarter: 2024Q1

REPORT INFORMATION
  Report Type: Report from Study
  Country: CA (occurrence: CA)
  Receive Date: 20240315
  Receipt Date: 20240319
  Transmission Date: 20240409
  Serious: Yes (Hospitalization, Other)
  Sender: FDA-Public Use
  Company Number: CA-ABBVIE-5678612

PATIENT
  Sex: Male

DRUGS (1)
  1. RINVOQ [Suspect]
     Active Substance: UPADACITINIB
     Indication: Psoriasis
     Dosage: FORM STRENGTH: 30 MILLIGRAM
     Route: 048

REACTIONS (3)
  - Lower limb fracture [Unknown]
  - Femur fracture [Unknown]
  - Fall [Unknown]
